FAERS Safety Report 10094114 (Version 1)
Quarter: 2014Q2

REPORT INFORMATION
  Report Type: Spontaneous
  Country: GB (occurrence: GB)
  Receive Date: 20140422
  Receipt Date: 20140422
  Transmission Date: 20141212
  Serious: Yes (Hospitalization, Other)
  Sender: FDA-Public Use
  Company Number: GB-ACCORD-023176

PATIENT
  Age: 71 Year
  Sex: Female

DRUGS (4)
  1. FLUOROURACIL [Suspect]
     Indication: PANCREATIC CARCINOMA METASTATIC
     Dosage: FIRST CYCLE OF CHEMOTHERAPY
  2. IRINOTECAN [Suspect]
     Indication: PANCREATIC CARCINOMA METASTATIC
     Dosage: FIRST CYCLE OF CHEMOTHERAPY
  3. OXALIPLATIN [Suspect]
     Indication: PANCREATIC CARCINOMA METASTATIC
     Dosage: FIRST CYCLE OF CHEMOTHERAPY
  4. FOLINIC ACID [Concomitant]
     Indication: PANCREATIC CARCINOMA METASTATIC

REACTIONS (8)
  - Mucosal inflammation [Recovered/Resolved]
  - Alopecia [Unknown]
  - Thrombocytopenia [Recovered/Resolved]
  - Melaena [Recovered/Resolved]
  - Pancytopenia [Recovered/Resolved]
  - Weight decreased [Unknown]
  - Off label use [Unknown]
  - Neutropenic sepsis [Recovered/Resolved]
